FAERS Safety Report 10269717 (Version 2)
Quarter: 2014Q3

REPORT INFORMATION
  Report Type: Spontaneous
  Country: GB (occurrence: None)
  Receive Date: 20140625
  Receipt Date: 20140714
  Transmission Date: 20150326
  Serious: Yes (Other)
  Sender: FDA-Public Use
  Company Number: GB-ALKEM-000615

PATIENT
  Age: 46 Year
  Sex: Female

DRUGS (4)
  1. QUETIAPINE (QUETIAPINE) [Suspect]
     Active Substance: QUETIAPINE
     Indication: PSYCHOTIC DISORDER
     Route: 051
  2. CLOBAZAM (CLOBAZAM) [Concomitant]
     Active Substance: CLOBAZAM
  3. CITALOPRAM [Suspect]
     Active Substance: CITALOPRAM HYDROBROMIDE
     Indication: PRODUCT USED FOR UNKNOWN INDICATION
     Route: 054
  4. EPILM CHRONO (EPILIM CHRONO) [Concomitant]

REACTIONS (1)
  - Epilepsy [None]
